FAERS Safety Report 8876542 (Version 3)
Quarter: 2013Q3

REPORT INFORMATION
  Report Type: Spontaneous
  Country: US (occurrence: US)
  Receive Date: 20121030
  Receipt Date: 20130703
  Transmission Date: 20140515
  Serious: Yes (Hospitalization)
  Sender: FDA-Public Use
  Company Number: US-GILEAD-2012-0063729

PATIENT
  Sex: Male

DRUGS (3)
  1. LETAIRIS [Suspect]
     Indication: PULMONARY ARTERIAL HYPERTENSION
     Dosage: 10 MG, QD
     Route: 048
     Dates: start: 20120502
  2. TYVASO [Concomitant]
  3. REVATIO [Concomitant]

REACTIONS (5)
  - Pulmonary hypertension [Unknown]
  - Bronchitis [Unknown]
  - Loss of consciousness [Unknown]
  - Pneumonia [Unknown]
  - Cardiac output decreased [Unknown]
